FAERS Safety Report 5601829-4 (Version None)
Quarter: 2008Q1

REPORT INFORMATION
  Report Type: 
  Country: None (occurrence: None)
  Receive Date: 20080124
  Receipt Date: 20080114
  Transmission Date: 20080703
  Serious: Yes (Life-Threatening, Hospitalization)
  Sender: FDA-Public Use
  Company Number: FR-PFIZER INC-2008004724

PATIENT
  Sex: Female

DRUGS (6)
  1. TAHOR [Suspect]
     Route: 048
     Dates: start: 20020101, end: 20071019
  2. INDAPAMIDE [Suspect]
     Indication: HYPERTENSION
     Route: 048
     Dates: start: 20070920, end: 20071019
  3. ANAFRANIL [Suspect]
     Route: 048
     Dates: start: 19970101, end: 20071019
  4. SOLIAN [Suspect]
     Route: 048
     Dates: start: 20020101, end: 20071019
  5. NORDAZ [Suspect]
     Route: 048
     Dates: start: 20020101, end: 20071019
  6. LERCAN [Suspect]
     Route: 048
     Dates: start: 20050101, end: 20071019

REACTIONS (1)
  - AGRANULOCYTOSIS [None]
